FAERS Safety Report 8154085-X (Version None)
Quarter: 2012Q1

REPORT INFORMATION
  Report Type: 
  Country: None (occurrence: None)
  Receive Date: 20120221
  Receipt Date: 20120213
  Transmission Date: 20120608
  Serious: Yes (Other)
  Sender: FDA-Public Use
  Company Number: JP-MERCK-1202USA02706

PATIENT
  Age: 69 Year
  Sex: Male

DRUGS (4)
  1. JANUVIA [Suspect]
     Indication: TYPE 2 DIABETES MELLITUS
     Route: 048
     Dates: start: 20100831, end: 20101014
  2. METFORMIN HCL [Concomitant]
     Route: 065
     Dates: start: 20100831, end: 20101014
  3. NORVASC [Concomitant]
     Route: 065
     Dates: start: 20100831, end: 20101014
  4. MICARDIS [Concomitant]
     Indication: HYPERTENSION
     Route: 065
     Dates: start: 20100831, end: 20101014

REACTIONS (1)
  - GASTRIC CANCER [None]
